FAERS Safety Report 4698110-7 (Version None)
Quarter: 2005Q2

REPORT INFORMATION
  Report Type: 
  Country: None (occurrence: None)
  Receive Date: 20050622
  Receipt Date: 20050622
  Transmission Date: 20051028
  Serious: Yes (Hospitalization)
  Sender: FDA-Public Use
  Company Number: None

PATIENT
  Age: 84 Year
  Sex: Male
  Weight: 61.5 kg

DRUGS (2)
  1. LORAZEPAM [Suspect]
     Indication: ANXIETY
     Dosage: 1MG   HS  ORAL
     Route: 048
  2. HALOPERIDOL [Suspect]
     Indication: ANXIETY
     Dosage: 0.5MG   TID   ORAL
     Route: 048

REACTIONS (7)
  - ARTHRALGIA [None]
  - BACK PAIN [None]
  - BLOOD PRESSURE SYSTOLIC DECREASED [None]
  - CONFUSIONAL STATE [None]
  - FALL [None]
  - HYPOTENSION [None]
  - TREMOR [None]
